FAERS Safety Report 8363889-X (Version None)
Quarter: 2012Q2

REPORT INFORMATION
  Report Type: 
  Country: None (occurrence: None)
  Receive Date: 20120516
  Receipt Date: 20120123
  Transmission Date: 20120825
  Serious: Yes (Hospitalization)
  Sender: FDA-Public Use
  Company Number: US-ALEXION-A201200116

PATIENT
  Sex: Female

DRUGS (2)
  1. SOLIRIS [Suspect]
     Indication: PAROXYSMAL NOCTURNAL HAEMOGLOBINURIA
     Dosage: 900 MG, Q2W
     Route: 042
  2. EXJADE [Concomitant]
     Indication: IRON OVERLOAD
     Dosage: UNK

REACTIONS (6)
  - NAUSEA [None]
  - DEHYDRATION [None]
  - COLITIS [None]
  - HAEMOGLOBIN DECREASED [None]
  - PYREXIA [None]
  - URINARY TRACT INFECTION [None]
